FAERS Safety Report 11385833 (Version 2)
Quarter: 2015Q4

REPORT INFORMATION
  Report Type: Report from Study
  Country: ES (occurrence: ES)
  Receive Date: 20150817
  Receipt Date: 20151128
  Transmission Date: 20160304
  Serious: Yes (Death, Other)
  Sender: FDA-Public Use
  Company Number: FR-BRISTOL-MYERS SQUIBB COMPANY-BMS-2015-053076

PATIENT
  Age: 83 Year
  Sex: Male
  Weight: 62 kg

DRUGS (2)
  1. APIXABAN [Suspect]
     Active Substance: APIXABAN
     Indication: CEREBROVASCULAR ACCIDENT PROPHYLAXIS
     Dosage: 5 MG, BID
     Route: 048
  2. APIXABAN [Suspect]
     Active Substance: APIXABAN
     Dosage: 5 UNK, UNK
     Route: 048

REACTIONS (2)
  - Myocardial infarction [Recovered/Resolved]
  - Haemorrhage [Fatal]

NARRATIVE: CASE EVENT DATE: 20140921
